FAERS Safety Report 6719121-3 (Version None)
Quarter: 2010Q2

REPORT INFORMATION
  Report Type: 
  Country: None (occurrence: None)
  Receive Date: 20100511
  Receipt Date: 20100505
  Transmission Date: 20101027
  Serious: Yes (Hospitalization)
  Sender: FDA-Public Use
  Company Number: US-ASTRAZENECA-2010SE20433

PATIENT
  Sex: Female
  Weight: 90.7 kg

DRUGS (4)
  1. PULMICORT FLEXHALER [Suspect]
     Indication: ASTHMA
     Route: 055
  2. SINGULAIR [Concomitant]
  3. CLARINEX [Concomitant]
  4. LOTRIL [Concomitant]

REACTIONS (2)
  - KNEE OPERATION [None]
  - THROMBOSIS [None]
